FAERS Safety Report 12713528 (Version 4)
Quarter: 2017Q3

REPORT INFORMATION
  Report Type: Report from Study
  Country: US (occurrence: US)
  Receive Date: 20160903
  Receipt Date: 20170816
  Transmission Date: 20171127
  Serious: No
  Sender: FDA-Public Use
  Company Number: PHEH2016US022317

PATIENT
  Sex: Female

DRUGS (1)
  1. AFINITOR [Suspect]
     Active Substance: EVEROLIMUS
     Indication: ASTROCYTOMA, LOW GRADE
     Dosage: 7.5 MG, QD
     Route: 065
     Dates: start: 20150227

REACTIONS (3)
  - Tooth infection [Unknown]
  - Swelling [Unknown]
  - Lymphoedema [Not Recovered/Not Resolved]
